FAERS Safety Report 17089552 (Version 2)
Quarter: 2020Q4

REPORT INFORMATION
  Report Type: Report from Study
  Country: FR (occurrence: FR)
  Receive Date: 20191128
  Receipt Date: 20201223
  Transmission Date: 20210113
  Serious: Yes (Other)
  Sender: FDA-Public Use
  Company Number: PHHY2018FR122029

PATIENT
  Age: 70 Year
  Sex: Male

DRUGS (2)
  1. SKENAN [Suspect]
     Active Substance: MORPHINE SULFATE
     Indication: BACK PAIN
     Dosage: 40 MG, QD
     Route: 065
     Dates: start: 20180818
  2. VOTRIENT [Suspect]
     Active Substance: PAZOPANIB HYDROCHLORIDE
     Indication: RENAL CANCER METASTATIC
     Dosage: 800 MG, QD
     Route: 048
     Dates: start: 20180904

REACTIONS (5)
  - Diarrhoea [Recovering/Resolving]
  - Hypothyroidism [Recovered/Resolved]
  - Hypertension [Recovering/Resolving]
  - Constipation [Recovered/Resolved]
  - Depression [Recovering/Resolving]

NARRATIVE: CASE EVENT DATE: 20180912
